FAERS Safety Report 12816198 (Version 1)
Quarter: 2016Q4

REPORT INFORMATION
  Report Type: Spontaneous
  Country: US (occurrence: US)
  Receive Date: 20161005
  Receipt Date: 20161005
  Transmission Date: 20170207
  Serious: No
  Sender: FDA-Public Use
  Company Number: US-AMGEN-USASP2015120546

PATIENT
  Age: 63 Year
  Sex: Female

DRUGS (3)
  1. RECLAST [Suspect]
     Active Substance: ZOLEDRONIC ACID
     Indication: PRODUCT USED FOR UNKNOWN INDICATION
     Route: 065
  2. PROLIA [Suspect]
     Active Substance: DENOSUMAB
     Indication: PRODUCT USED FOR UNKNOWN INDICATION
     Dosage: UNK
     Route: 065
  3. ACTONEL [Concomitant]
     Active Substance: RISEDRONATE SODIUM

REACTIONS (7)
  - Toothache [Not Recovered/Not Resolved]
  - Oesophageal disorder [Unknown]
  - Pain in extremity [Unknown]
  - Pain [Unknown]
  - Cystitis [Unknown]
  - Osteopenia [Unknown]
  - Back pain [Unknown]

NARRATIVE: CASE EVENT DATE: 2002
